FAERS Safety Report 11782638 (Version 1)
Quarter: 2015Q4

REPORT INFORMATION
  Report Type: Spontaneous
  Country: JP (occurrence: JP)
  Receive Date: 20151127
  Receipt Date: 20151127
  Transmission Date: 20160305
  Serious: Yes (Hospitalization)
  Sender: FDA-Public Use
  Company Number: JP-009507513-1511JPN012070

PATIENT
  Age: 32 Year
  Sex: Male

DRUGS (2)
  1. SOVALDI [Suspect]
     Active Substance: SOFOSBUVIR
     Dosage: 400 MG DAILY, DIVIDED DOSE, FREQUENCY UNKNOWN
     Route: 048
     Dates: start: 20150919
  2. REBETOL [Suspect]
     Active Substance: RIBAVIRIN
     Dosage: 1000 MG DAILY, DIVIDED DOSE, FREQUENCY UNKNOWN
     Route: 048
     Dates: start: 20150919

REACTIONS (2)
  - Liver function test abnormal [Recovering/Resolving]
  - Blood creatine phosphokinase increased [Recovering/Resolving]

NARRATIVE: CASE EVENT DATE: 20151008
